FAERS Safety Report 5661188-8 (Version None)
Quarter: 2008Q1

REPORT INFORMATION
  Report Type: 
  Country: None (occurrence: None)
  Receive Date: 20080311
  Receipt Date: 20080307
  Transmission Date: 20080703
  Serious: Yes (Death, Hospitalization)
  Sender: FDA-Public Use
  Company Number: DE-ABBOTT-08P-062-0441261-00

PATIENT
  Sex: Male

DRUGS (3)
  1. TEVETEN HCT [Suspect]
     Indication: BLOOD PRESSURE MANAGEMENT
     Route: 048
     Dates: start: 20071009, end: 20071231
  2. METAMIZOLE SODIUM [Concomitant]
     Indication: PAIN
     Route: 048
     Dates: start: 20071123, end: 20071231
  3. BISOPROLOL FUMARATE [Concomitant]
     Indication: TACHYCARDIA
     Route: 048
     Dates: start: 20060209, end: 20071231

REACTIONS (2)
  - PLEURAL EFFUSION [None]
  - SEPSIS [None]
